FAERS Safety Report 17285441 (Version 1)
Quarter: 2020Q1

REPORT INFORMATION
  Report Type: Spontaneous
  Country: US (occurrence: US)
  Receive Date: 20200117
  Receipt Date: 20200117
  Transmission Date: 20200409
  Serious: Yes (Other)
  Sender: FDA-Public Use
  Company Number: US-ALLERGAN-1948567US

PATIENT
  Sex: Female

DRUGS (3)
  1. REFRESH CELLUVISC [Suspect]
     Active Substance: CARBOXYMETHYLCELLULOSE SODIUM
     Dosage: INCREASED TO EVERY 1-2 HOURS AS NEEDED SOMETIMES 4 TIMES A DAY
     Dates: start: 20191202
  2. REFRESH CELLUVISC [Suspect]
     Active Substance: CARBOXYMETHYLCELLULOSE SODIUM
     Indication: DRY EYE
     Dosage: A COUPLE OF DROPS IN MORNING AND NIGHT
     Route: 047
     Dates: start: 2009
  3. VITAMIN D NOS [Concomitant]
     Active Substance: VITAMIN D NOS
     Indication: BONE DISORDER

REACTIONS (8)
  - Macular degeneration [Not Recovered/Not Resolved]
  - Ocular discomfort [Unknown]
  - Product packaging quantity issue [Unknown]
  - Aphonia [Recovered/Resolved]
  - Dysphonia [Not Recovered/Not Resolved]
  - Product quality issue [Unknown]
  - Muscle twitching [Recovered/Resolved]
  - Product physical consistency issue [Unknown]

NARRATIVE: CASE EVENT DATE: 20191202
